FAERS Safety Report 9349105 (Version 2)
Quarter: 2013Q3

REPORT INFORMATION
  Report Type: Report from Study
  Country: US (occurrence: US)
  Receive Date: 20130614
  Receipt Date: 20130719
  Transmission Date: 20140515
  Serious: Yes (Hospitalization, Other)
  Sender: FDA-Public Use
  Company Number: US-ABBOTT-13P-163-1100697-00

PATIENT
  Age: 69 Year
  Sex: Male
  Weight: 97.61 kg

DRUGS (28)
  1. NIASPAN (COATED) [Suspect]
     Indication: HYPERLIPIDAEMIA
     Dates: start: 20060918, end: 20070605
  2. NIASPAN (COATED) [Suspect]
     Dates: start: 20090711, end: 20110118
  3. NIASPAN (COATED) [Suspect]
     Dates: start: 20120208, end: 20130220
  4. NIASPAN (COATED) [Suspect]
     Indication: HYPERLIPIDAEMIA
     Dates: start: 20130220
  5. LISPRO INSULIN [Concomitant]
     Indication: PRODUCT USED FOR UNKNOWN INDICATION
  6. ASPIRIN [Concomitant]
     Indication: PRODUCT USED FOR UNKNOWN INDICATION
  7. NEXIUM [Concomitant]
     Indication: PRODUCT USED FOR UNKNOWN INDICATION
  8. PRAVASTATIN [Concomitant]
     Indication: PRODUCT USED FOR UNKNOWN INDICATION
  9. CELLCEPT [Concomitant]
     Indication: HEART TRANSPLANT
  10. RAPAMUNE [Concomitant]
     Indication: HEART TRANSPLANT
  11. PANTOPRAZOLE [Concomitant]
     Indication: PRODUCT USED FOR UNKNOWN INDICATION
  12. FLOMAX [Concomitant]
     Indication: PRODUCT USED FOR UNKNOWN INDICATION
  13. PREDNISONE [Concomitant]
     Indication: PRODUCT USED FOR UNKNOWN INDICATION
  14. PROGRAF [Concomitant]
     Indication: HEART TRANSPLANT
  15. ZANTAC [Concomitant]
     Indication: PRODUCT USED FOR UNKNOWN INDICATION
  16. FISH OIL [Concomitant]
     Indication: PRODUCT USED FOR UNKNOWN INDICATION
  17. CALCIUM + VIT D [Concomitant]
     Indication: PRODUCT USED FOR UNKNOWN INDICATION
  18. VITAMINS [Concomitant]
     Indication: PRODUCT USED FOR UNKNOWN INDICATION
  19. DIAZEPAM [Concomitant]
     Indication: PRODUCT USED FOR UNKNOWN INDICATION
  20. CYMBALTA [Concomitant]
     Indication: PRODUCT USED FOR UNKNOWN INDICATION
  21. HUMALOG [Concomitant]
     Indication: PRODUCT USED FOR UNKNOWN INDICATION
     Dosage: PENS
  22. LANTUS [Concomitant]
     Indication: PRODUCT USED FOR UNKNOWN INDICATION
  23. MAGNESIUM [Concomitant]
     Indication: PRODUCT USED FOR UNKNOWN INDICATION
  24. TYLENOL [Concomitant]
     Indication: PRODUCT USED FOR UNKNOWN INDICATION
  25. PLAVIX [Concomitant]
     Indication: BASILAR ARTERY STENOSIS
  26. MELATONIN [Concomitant]
     Indication: PRODUCT USED FOR UNKNOWN INDICATION
  27. REFRESH TEARS [Concomitant]
     Indication: PRODUCT USED FOR UNKNOWN INDICATION
  28. TRIAMCINOLONE [Concomitant]
     Indication: PSORIASIS
     Route: 061

REACTIONS (12)
  - Cerebral thrombosis [Unknown]
  - Arrhythmia [Recovered/Resolved]
  - Respiratory tract infection fungal [Recovered/Resolved]
  - Arterial occlusive disease [Unknown]
  - H1N1 influenza [Unknown]
  - Coma [Recovered/Resolved]
  - Basilar artery stenosis [Recovered/Resolved]
  - Loss of consciousness [Recovered/Resolved]
  - Syncope [Recovered/Resolved]
  - Syncope [Recovered/Resolved]
  - Fall [Recovered/Resolved]
  - Syncope [Recovered/Resolved]
